FAERS Safety Report 22329389 (Version 1)
Quarter: 2023Q2

REPORT INFORMATION
  Report Type: Report from Study
  Country: US (occurrence: US)
  Receive Date: 20230517
  Receipt Date: 20230517
  Transmission Date: 20230721
  Serious: Yes (Hospitalization)
  Sender: FDA-Public Use
  Company Number: US-SERVIER-S23004939

PATIENT

DRUGS (1)
  1. TIBSOVO [Suspect]
     Active Substance: IVOSIDENIB
     Indication: Cholangiocarcinoma
     Dosage: 500 MG, QD
     Route: 048
     Dates: start: 20220614

REACTIONS (5)
  - Chest pain [Unknown]
  - Pleural effusion [Unknown]
  - Dyspnoea [Unknown]
  - Blood potassium increased [Unknown]
  - Somnolence [Unknown]
